FAERS Safety Report 15278817 (Version 2)
Quarter: 2018Q3

REPORT INFORMATION
  Report Type: Report from Study
  Country: US (occurrence: US)
  Receive Date: 20180815
  Receipt Date: 20180911
  Transmission Date: 20181010
  Serious: Yes (Other)
  Sender: FDA-Public Use
  Company Number: US-ROCHE-2158824

PATIENT
  Age: 59 Year
  Sex: Female
  Weight: 93.98 kg

DRUGS (2)
  1. OCREVUS [Suspect]
     Active Substance: OCRELIZUMAB
     Indication: PRIMARY PROGRESSIVE MULTIPLE SCLEROSIS
     Dosage: 1ST HALF DOSE ?ON 23/JUL/2018, SHE RECEIVED HER SUBSEQUENT INFUSION OF OCRELIZUMAB
     Route: 042
     Dates: start: 20180709
  2. BACLOFEN. [Concomitant]
     Active Substance: BACLOFEN
     Dosage: TWO IN MORNING
     Route: 065

REACTIONS (8)
  - Pain [Recovering/Resolving]
  - Headache [Unknown]
  - Feeling abnormal [Unknown]
  - Pain in extremity [Recovered/Resolved]
  - Insomnia [Unknown]
  - Back pain [Unknown]
  - Blood glucose increased [Unknown]
  - Pain in extremity [Not Recovered/Not Resolved]

NARRATIVE: CASE EVENT DATE: 20180713
